FAERS Safety Report 10008920 (Version 1)
Quarter: 2014Q1

REPORT INFORMATION
  Report Type: Spontaneous
  Country: US (occurrence: US)
  Receive Date: 20140313
  Receipt Date: 20140313
  Transmission Date: 20141002
  Serious: No
  Sender: FDA-Public Use
  Company Number: US-INCYTE CORPORATION-2012IN000843

PATIENT
  Age: 69 Year
  Sex: Female

DRUGS (4)
  1. JAKAFI [Suspect]
     Indication: POLYCYTHAEMIA VERA
     Dosage: UNK
     Route: 048
     Dates: end: 20120316
  2. JAKAFI [Suspect]
     Dosage: 20 MG QOD
     Route: 048
     Dates: start: 20120509
  3. SYNTHROID [Concomitant]
  4. ANTIHYPERTENSIVES [Concomitant]

REACTIONS (4)
  - Haematocrit decreased [Unknown]
  - White blood cell count increased [Unknown]
  - Platelet count increased [Unknown]
  - Activities of daily living impaired [Unknown]
